FAERS Safety Report 23125138 (Version 2)
Quarter: 2023Q4

REPORT INFORMATION
  Report Type: Spontaneous
  Country: US (occurrence: US)
  Receive Date: 20231030
  Receipt Date: 20231130
  Transmission Date: 20240110
  Serious: No
  Sender: FDA-Public Use
  Company Number: US-GLAXOSMITHKLINE-USCH2023051115

PATIENT
  Age: 66 Year
  Sex: Male

DRUGS (1)
  1. GLYCERIN\SORBITOL [Suspect]
     Active Substance: GLYCERIN\SORBITOL
     Indication: Product used for unknown indication
     Dosage: UNK

REACTIONS (3)
  - Oral mucosal blistering [Recovering/Resolving]
  - Gingival pain [Recovering/Resolving]
  - Dry mouth [Recovering/Resolving]
